FAERS Safety Report 7731713-1 (Version None)
Quarter: 2011Q3

REPORT INFORMATION
  Report Type: 
  Country: None (occurrence: None)
  Receive Date: 20110906
  Receipt Date: 20110629
  Transmission Date: 20111222
  Serious: No
  Sender: FDA-Public Use
  Company Number: US-AMGEN-USASP2011033270

PATIENT
  Age: 72 Year
  Sex: Female

DRUGS (5)
  1. TYLENOL W/ CODEINE NO. 3 [Concomitant]
     Dosage: UNK
  2. FORTICAL [Concomitant]
     Dosage: UNK
  3. SYNTHROID [Concomitant]
     Dosage: 1 MUG, QD
  4. PROLIA [Suspect]
     Indication: OSTEOPOROSIS POSTMENOPAUSAL
     Dosage: 60 MG, Q6MO
     Dates: start: 20110614
  5. AGGRENOX [Concomitant]
     Dosage: UNK

REACTIONS (1)
  - INCORRECT STORAGE OF DRUG [None]
